FAERS Safety Report 6228789-X (Version None)
Quarter: 2009Q2

REPORT INFORMATION
  Report Type: 
  Country: None (occurrence: None)
  Receive Date: 20090615
  Receipt Date: 20090603
  Transmission Date: 20091009
  Serious: Yes (Hospitalization)
  Sender: FDA-Public Use
  Company Number: US-PFIZER INC-2004194999US

PATIENT
  Sex: Female
  Weight: 93 kg

DRUGS (12)
  1. EXEMESTANE [Suspect]
     Indication: BREAST CANCER FEMALE
     Dosage: 25 MG, 1X/DAY
     Route: 048
     Dates: start: 20020708, end: 20040101
  2. EXEMESTANE [Suspect]
     Dosage: 25 MG, 1X/DAY
     Route: 048
     Dates: start: 20040108
  3. INSULIN [Concomitant]
     Indication: DIABETES MELLITUS
     Route: 048
     Dates: start: 20020627
  4. FAMOTIDINE [Concomitant]
     Indication: GASTROOESOPHAGEAL REFLUX DISEASE
  5. ZIAC [Concomitant]
     Route: 048
     Dates: start: 20020627
  6. IRBESARTAN [Concomitant]
     Indication: HYPERTENSION
  7. HYDROCHLOROTHIAZIDE [Concomitant]
     Indication: HYPERTENSION
  8. AMLODIPINE BESYLATE [Concomitant]
     Indication: HYPERTENSION
     Route: 048
     Dates: start: 20020725
  9. AVALIDE [Concomitant]
     Route: 048
     Dates: start: 20030310, end: 20040101
  10. ACETYLSALICYLIC ACID SRT [Concomitant]
     Route: 048
  11. PROCRIT [Concomitant]
     Route: 058
     Dates: start: 20020806
  12. ZANTAC [Concomitant]
     Route: 048
     Dates: start: 20020725

REACTIONS (2)
  - CEREBROVASCULAR ACCIDENT [None]
  - RENAL FAILURE ACUTE [None]
